FAERS Safety Report 11850211 (Version 1)
Quarter: 2015Q4

REPORT INFORMATION
  Report Type: Spontaneous
  Country: FR (occurrence: FR)
  Receive Date: 20151218
  Receipt Date: 20151218
  Transmission Date: 20160305
  Serious: Yes (Hospitalization, Other)
  Sender: FDA-Public Use
  Company Number: FR-PFIZER INC-2015440124

PATIENT
  Age: 41 Year
  Sex: Female

DRUGS (4)
  1. SALAZOPYRINE [Suspect]
     Active Substance: SULFASALAZINE
     Dosage: 500 MG, 1X/DAY
     Route: 048
     Dates: start: 20151012, end: 20151018
  2. KETOPROFEN LP ARROW [Concomitant]
     Dosage: STREGNTH: 100MG
     Route: 048
  3. SALAZOPYRINE [Suspect]
     Active Substance: SULFASALAZINE
     Dosage: 1000 MG, 1X/DAY
     Route: 048
     Dates: start: 20151019, end: 20151025
  4. ESOMEPRAZOLE ACTAVIS [Concomitant]
     Active Substance: ESOMEPRAZOLE
     Dosage: STREGNTH: 40MG
     Route: 048

REACTIONS (5)
  - General physical health deterioration [Unknown]
  - Urticaria [Recovered/Resolved]
  - Hepatitis [Recovered/Resolved]
  - Nausea [Unknown]
  - Pyrexia [Recovered/Resolved]

NARRATIVE: CASE EVENT DATE: 20151021
